FAERS Safety Report 8355492-2 (Version None)
Quarter: 2012Q2

REPORT INFORMATION
  Report Type: 
  Country: None (occurrence: None)
  Receive Date: 20120512
  Receipt Date: 20120501
  Transmission Date: 20120825
  Serious: Yes (Hospitalization, Other)
  Sender: FDA-Public Use
  Company Number: US-ELI_LILLY_AND_COMPANY-US201203005824

PATIENT
  Age: 74 Year
  Sex: Female

DRUGS (8)
  1. REMICADE [Concomitant]
  2. DOXEPIN [Concomitant]
  3. FORTEO [Suspect]
     Indication: OSTEOPOROSIS
     Dosage: UNK, UNKNOWN
     Route: 058
     Dates: start: 20120104
  4. OMEPRAZOLE [Concomitant]
  5. CALCIUM [Concomitant]
  6. GABAPENTIN [Concomitant]
  7. ORPHENADRINE CITRATE [Concomitant]
  8. VICODIN [Concomitant]

REACTIONS (3)
  - HODGKIN'S DISEASE [None]
  - NEUROPATHY PERIPHERAL [None]
  - RHEUMATOID ARTHRITIS [None]
